FAERS Safety Report 20859333 (Version 2)
Quarter: 2022Q2

REPORT INFORMATION
  Report Type: Spontaneous
  Country: IT (occurrence: IT)
  Receive Date: 20220523
  Receipt Date: 20220526
  Transmission Date: 20220721
  Serious: Yes (Hospitalization, Other)
  Sender: FDA-Public Use
  Company Number: IT-MINISAL02-866964

PATIENT
  Age: 15 Year
  Sex: Female

DRUGS (1)
  1. ACETAMINOPHEN [Suspect]
     Active Substance: ACETAMINOPHEN
     Indication: Product used for unknown indication
     Dosage: 14 GRAM, TOTAL
     Route: 048
     Dates: start: 20211130, end: 20211130

REACTIONS (3)
  - Drug abuse [Unknown]
  - Vomiting [Unknown]
  - Transaminases increased [Unknown]

NARRATIVE: CASE EVENT DATE: 20211130
